FAERS Safety Report 4597605-4 (Version None)
Quarter: 2005Q1

REPORT INFORMATION
  Report Type: 
  Country: None (occurrence: None)
  Receive Date: 20050228
  Receipt Date: 20050228
  Transmission Date: 20050727
  Serious: Yes (Hospitalization)
  Sender: FDA-Public Use
  Company Number: None

PATIENT
  Sex: Male

DRUGS (13)
  1. MORPHINE [Suspect]
     Indication: PAIN
     Dosage: 30 MG TID ORAL
     Route: 048
  2. OXYCODONE [Suspect]
     Indication: PAIN
     Dosage: 5 MG Q 6 HR PRN ORAL
     Route: 048
  3. TRAZODONE HCL [Concomitant]
  4. LISINOPRIL [Concomitant]
  5. QUININE SULFATE [Concomitant]
  6. SALSALATE [Concomitant]
  7. DONEPEZIL HCL [Concomitant]
  8. CYANOCOBALAMIN [Concomitant]
  9. AMITRIPTYLINE HCL [Concomitant]
  10. LORATADINE [Concomitant]
  11. METFORMIN [Concomitant]
  12. INSULIN [Concomitant]
  13. PANGESTYME [Concomitant]

REACTIONS (2)
  - CONFUSIONAL STATE [None]
  - LETHARGY [None]
